FAERS Safety Report 4987085-9 (Version None)
Quarter: 2006Q2

REPORT INFORMATION
  Report Type: 
  Country: None (occurrence: None)
  Receive Date: 20060501
  Receipt Date: 20060407
  Transmission Date: 20061013
  Serious: Yes (Other)
  Sender: FDA-Public Use
  Company Number: NL-GLAXOSMITHKLINE-B0420686A

PATIENT

DRUGS (8)
  1. ROPINIROLE HYDROCHLORIDE [Suspect]
     Indication: PARKINSONISM
     Route: 065
     Dates: start: 20050701
  2. LASIX [Suspect]
     Dosage: 125MG FOUR TIMES PER DAY
     Dates: start: 20060404, end: 20060411
  3. AMIODARONE HCL [Concomitant]
     Dosage: 200MG PER DAY
     Dates: start: 20060401
  4. SYMMETREL [Concomitant]
     Dosage: 100MG THREE TIMES PER DAY
     Route: 048
  5. QUINAPRIL HCL [Concomitant]
     Dosage: 10MG TWICE PER DAY
  6. ISOSORBIDE MONONITRATE [Concomitant]
     Dosage: 50MG PER DAY
  7. SINEMET [Concomitant]
     Dosage: 1TAB PER DAY
  8. TAMSULOSINE [Concomitant]
     Dosage: .4MG PER DAY

REACTIONS (2)
  - DRUG INTERACTION [None]
  - HALLUCINATION [None]
